FAERS Safety Report 8005377-6 (Version None)
Quarter: 2011Q4

REPORT INFORMATION
  Report Type: 
  Country: None (occurrence: None)
  Receive Date: 20111223
  Receipt Date: 20111209
  Transmission Date: 20120403
  Serious: Yes (Disabling)
  Sender: FDA-Public Use
  Company Number: JP-ROCHE-1023793

PATIENT
  Sex: Male

DRUGS (15)
  1. PEGASYS [Suspect]
     Route: 058
  2. CONFATANIN [Concomitant]
     Route: 048
  3. DEPAS [Concomitant]
     Dates: start: 20110527, end: 20110802
  4. TRIAZOLAM [Concomitant]
     Route: 048
     Dates: start: 20110318, end: 20111118
  5. PEGASYS [Suspect]
     Route: 058
     Dates: start: 20110930
  6. KAKKON-TO [Concomitant]
     Route: 048
     Dates: start: 20110527, end: 20110602
  7. LOPERAMIDE HCL [Concomitant]
     Dosage: TAKEN AS NEEDED
     Route: 048
     Dates: start: 20110610, end: 20110908
  8. MAO-TO [Concomitant]
     Route: 048
     Dates: start: 20110527, end: 20110602
  9. COPEGUS [Suspect]
     Route: 048
     Dates: start: 20110930
  10. COPEGUS [Suspect]
     Route: 048
     Dates: start: 20110909, end: 20110929
  11. COPEGUS [Suspect]
     Indication: HEPATITIS C
     Route: 048
     Dates: start: 20110506, end: 20110908
  12. NIZATIDINE [Concomitant]
     Dates: start: 20110513, end: 20110805
  13. SELBEX [Concomitant]
     Dates: start: 20110506, end: 20111118
  14. PEGASYS [Suspect]
     Indication: HEPATITIS C
     Route: 058
     Dates: start: 20110506, end: 20110708
  15. BIFIDOBACTERIUM [Concomitant]
     Route: 048
     Dates: start: 20110527, end: 20110802

REACTIONS (2)
  - CEREBRAL INFARCTION [None]
  - PLATELET COUNT DECREASED [None]
